FAERS Safety Report 5369301-7 (Version None)
Quarter: 2007Q2

REPORT INFORMATION
  Report Type: 
  Country: None (occurrence: None)
  Receive Date: 20070625
  Receipt Date: 20070223
  Transmission Date: 20071010
  Serious: No
  Sender: FDA-Public Use
  Company Number: US-ASTRAZENECA-2007UW03608

PATIENT
  Age: 54 Year
  Sex: Female
  Weight: 52.2 kg

DRUGS (4)
  1. CRESTOR [Suspect]
     Indication: BLOOD CHOLESTEROL INCREASED
     Route: 048
  2. CRESTOR [Suspect]
     Route: 048
  3. THYROID TAB [Concomitant]
  4. FOLIC ACID [Concomitant]

REACTIONS (3)
  - COLD SWEAT [None]
  - PAIN [None]
  - PALPITATIONS [None]
